FAERS Safety Report 14712562 (Version 2)
Quarter: 2018Q2

REPORT INFORMATION
  Report Type: Report from Study
  Country: US (occurrence: US)
  Receive Date: 20180404
  Receipt Date: 20180418
  Transmission Date: 20180711
  Serious: Yes (Hospitalization)
  Sender: FDA-Public Use
  Company Number: US-ROCHE-2065129

PATIENT
  Age: 66 Year
  Sex: Male
  Weight: 85.3 kg

DRUGS (9)
  1. DRONABINOL. [Concomitant]
     Active Substance: DRONABINOL
     Route: 065
     Dates: start: 20180111
  2. RIVAROXABAN [Concomitant]
     Active Substance: RIVAROXABAN
     Route: 065
     Dates: start: 20180112
  3. OXYCODONE [Concomitant]
     Active Substance: OXYCODONE
     Route: 065
     Dates: start: 20180102
  4. LOVENOX [Concomitant]
     Active Substance: ENOXAPARIN SODIUM
     Dosage: 80 MG/0.8 ML TOTAL DAILY DOSE
     Route: 065
     Dates: start: 20180122, end: 20180129
  5. FENTANYL. [Concomitant]
     Active Substance: FENTANYL
     Route: 065
     Dates: start: 20180125, end: 20180126
  6. MIRALAX [Concomitant]
     Active Substance: POLYETHYLENE GLYCOL 3350
     Route: 065
     Dates: start: 20180101
  7. ATEZOLIZUMAB. [Suspect]
     Active Substance: ATEZOLIZUMAB
     Indication: PANCREATIC CARCINOMA METASTATIC
     Dosage: MOST RECENT DOSE PRIOR TO SEPSIS ONSET: 08/JAN/2018, 1200 MG
     Route: 042
     Dates: start: 20180108, end: 20180129
  8. PANCRELIPASE. [Concomitant]
     Active Substance: PANCRELIPASE
     Dosage: 15000 UNITS - 51000 UNITS - 82000 UNITS TOTAL DAILY DOSE
     Route: 065
     Dates: start: 20171101
  9. RO 6895882 (CEA-IL2V) [Suspect]
     Active Substance: INVESTIGATIONAL PRODUCT
     Indication: PANCREATIC CARCINOMA METASTATIC
     Dosage: AT ESCALATING DOSES PER PROTOCOL?MOST RECENT DOSE PRIOR TO SEPSIS ONSET: 15/JAN/2018, 15 MG
     Route: 042
     Dates: start: 20180108, end: 20180129

REACTIONS (4)
  - Procedural hypotension [Not Recovered/Not Resolved]
  - Fatigue [Recovering/Resolving]
  - Lung infection [Recovering/Resolving]
  - Acute kidney injury [Not Recovered/Not Resolved]

NARRATIVE: CASE EVENT DATE: 20180126
